FAERS Safety Report 12264410 (Version 1)
Quarter: 2016Q2

REPORT INFORMATION
  Report Type: Spontaneous
  Country: US (occurrence: US)
  Receive Date: 20160413
  Receipt Date: 20160413
  Transmission Date: 20160815
  Serious: No
  Sender: FDA-Public Use
  Company Number: US-JNJFOC-20160305439

PATIENT
  Sex: Female
  Weight: 56.25 kg

DRUGS (4)
  1. MENS ROGAINE EXTRA STRENGTH [Suspect]
     Active Substance: MINOXIDIL
     Indication: ALOPECIA
     Dosage: DOSAGE: SQUIRT DROPS ON EACH SIDE OF PART LINES.
     Route: 061
  2. MULTIVITAMIN [Concomitant]
     Active Substance: VITAMINS
     Indication: COELIAC DISEASE
     Dosage: INTERVAL 2 YEARS
     Route: 065
  3. CALCIUM [Concomitant]
     Active Substance: CALCIUM
     Indication: COELIAC DISEASE
     Dosage: INTERVAL 2 YEARS
     Route: 065
  4. MENS ROGAINE EXTRA STRENGTH [Suspect]
     Active Substance: MINOXIDIL
     Route: 061

REACTIONS (7)
  - Drug ineffective [Unknown]
  - Pruritus [Recovered/Resolved]
  - Wrong technique in product usage process [Recovered/Resolved]
  - Alopecia [Recovered/Resolved]
  - Drug prescribing error [Recovered/Resolved]
  - Off label use [Recovered/Resolved]
  - Skin irritation [Recovered/Resolved]
